FAERS Safety Report 23963085 (Version 1)
Quarter: 2024Q2

REPORT INFORMATION
  Report Type: Spontaneous
  Country: US (occurrence: US)
  Receive Date: 20240611
  Receipt Date: 20240611
  Transmission Date: 20240716
  Serious: No
  Sender: FDA-Public Use
  Company Number: US-AMGEN-USASP2024113138

PATIENT
  Sex: Female

DRUGS (2)
  1. TEPEZZA [Suspect]
     Active Substance: TEPROTUMUMAB-TRBW
     Indication: Product used for unknown indication
     Dosage: 430 MILLIGRAM (10 MILLIGRAM/KILOGRAM) (FIRST INFUSION)
     Route: 042
     Dates: start: 202211
  2. TEPEZZA [Suspect]
     Active Substance: TEPROTUMUMAB-TRBW
     Dosage: 860 MILLIGRAM (20 MILLIGRAM/KILOGRAM) (EIGHTH INFUSION)
     Route: 042
     Dates: end: 202304

REACTIONS (1)
  - Off label use [Unknown]
